FAERS Safety Report 10727984 (Version 1)
Quarter: 2015Q1

REPORT INFORMATION
  Report Type: Spontaneous
  Country: CN (occurrence: CN)
  Receive Date: 20150121
  Receipt Date: 20150121
  Transmission Date: 20150721
  Serious: Yes (Hospitalization)
  Sender: FDA-Public Use
  Company Number: CN-PFIZER INC-2015014251

PATIENT
  Age: 51 Year
  Sex: Male
  Weight: 78 kg

DRUGS (4)
  1. BAYASPIRIN [Concomitant]
     Active Substance: ASPIRIN
     Indication: ANTIPLATELET THERAPY
     Dosage: 0.1 G, 1X/DAY
     Route: 048
     Dates: start: 20140519, end: 20140528
  2. LIPITOR [Suspect]
     Active Substance: ATORVASTATIN CALCIUM
     Indication: LIPIDS INCREASED
     Dosage: 20 MG, 1X/DAY
     Route: 048
     Dates: start: 20140519, end: 20140526
  3. PLAVIX [Concomitant]
     Active Substance: CLOPIDOGREL BISULFATE
     Indication: ANTIPLATELET THERAPY
     Dosage: 75 MG, 1X/DAY
     Route: 048
     Dates: start: 20140519, end: 20140528
  4. ELANTAN - SLOW RELEASE [Concomitant]
     Dosage: 50 MG, 1X/DAY
     Route: 048
     Dates: start: 20140519, end: 20140528

REACTIONS (3)
  - Alanine aminotransferase increased [Recovering/Resolving]
  - Blood lactate dehydrogenase increased [Recovering/Resolving]
  - Aspartate aminotransferase increased [Recovering/Resolving]

NARRATIVE: CASE EVENT DATE: 20140523
